FAERS Safety Report 4534497-3 (Version None)
Quarter: 2004Q4

REPORT INFORMATION
  Report Type: 
  Country: None (occurrence: None)
  Receive Date: 20041214
  Receipt Date: 20041025
  Transmission Date: 20050328
  Serious: No
  Sender: FDA-Public Use
  Company Number: 2004241296US

PATIENT
  Sex: Female

DRUGS (3)
  1. BEXTRA [Suspect]
     Indication: BURSITIS
     Dosage: ORAL
     Route: 048
     Dates: end: 20041021
  2. DIURETICS [Concomitant]
  3. ATIVAN [Concomitant]

REACTIONS (5)
  - ANXIETY [None]
  - CARDIAC DISORDER [None]
  - CHEST PAIN [None]
  - OEDEMA PERIPHERAL [None]
  - SURGERY [None]
